FAERS Safety Report 22541394 (Version 1)
Quarter: 2023Q2

REPORT INFORMATION
  Report Type: Spontaneous
  Country: US (occurrence: None)
  Receive Date: 20230608
  Receipt Date: 20230608
  Transmission Date: 20230721
  Serious: No
  Sender: FDA-Public Use
  Company Number: None

PATIENT
  Sex: Male

DRUGS (18)
  1. ERLEADA [Suspect]
     Active Substance: APALUTAMIDE
     Indication: Prostate cancer
     Dosage: OTHER QUANTITY : 4T;?FREQUENCY : DAILY;?
     Route: 048
  2. AMLODIPINE [Concomitant]
  3. ASPIRIN [Concomitant]
  4. PLAVIX [Concomitant]
     Active Substance: CLOPIDOGREL BISULFATE
  5. NITROSTAT [Concomitant]
     Active Substance: NITROGLYCERIN
  6. BACREIM [Concomitant]
  7. INSULIIN [Concomitant]
  8. FARXIGA [Concomitant]
     Active Substance: DAPAGLIFLOZIN PROPANEDIOL
  9. LEXAPRO [Concomitant]
     Active Substance: ESCITALOPRAM OXALATE
  10. LEVOCETIRIZINE [Concomitant]
     Active Substance: LEVOCETIRIZINE
  11. CEFDINIR [Concomitant]
     Active Substance: CEFDINIR
  12. XYZAL [Concomitant]
     Active Substance: LEVOCETIRIZINE DIHYDROCHLORIDE
  13. NAPROXEN [Concomitant]
  14. PREGABALIN [Concomitant]
  15. MEMANTINE [Concomitant]
     Active Substance: MEMANTINE
  16. ENTRESTO [Concomitant]
     Active Substance: SACUBITRIL\VALSARTAN
  17. SPIRONOLACTONE [Concomitant]
     Active Substance: SPIRONOLACTONE
  18. METOPROLOL [Concomitant]

REACTIONS (2)
  - Prostate cancer [None]
  - Therapy cessation [None]
